FAERS Safety Report 8306825-4 (Version None)
Quarter: 2012Q2

REPORT INFORMATION
  Report Type: 
  Country: None (occurrence: None)
  Receive Date: 20120424
  Receipt Date: 20120419
  Transmission Date: 20120825
  Serious: No
  Sender: FDA-Public Use
  Company Number: US-PFIZER INC-2012097812

PATIENT
  Sex: Male
  Weight: 113 kg

DRUGS (5)
  1. SUTENT [Suspect]
     Indication: RENAL CANCER
  2. LISINOPRIL [Concomitant]
     Indication: HYPERTENSION
     Dosage: 10 MG, 1X/DAY
  3. INSULIN [Suspect]
     Dosage: UNK
  4. ZOCOR [Concomitant]
     Indication: BLOOD CHOLESTEROL INCREASED
     Dosage: 20 MG, 1X/DAY
  5. SUTENT [Suspect]
     Indication: LUNG NEOPLASM MALIGNANT
     Dosage: 50 MG, 1X/DAY
     Route: 048
     Dates: start: 20120101

REACTIONS (12)
  - GENITAL RASH [None]
  - NAUSEA [None]
  - DYSGEUSIA [None]
  - PRURITUS [None]
  - CONTUSION [None]
  - WEIGHT INCREASED [None]
  - GINGIVAL BLEEDING [None]
  - HEADACHE [None]
  - SKIN EXFOLIATION [None]
  - SKIN HAEMORRHAGE [None]
  - AGEUSIA [None]
  - SOMNOLENCE [None]
